FAERS Safety Report 23986541 (Version 1)
Quarter: 2024Q2

REPORT INFORMATION
  Report Type: Spontaneous
  Country: US (occurrence: None)
  Receive Date: 20240617
  Receipt Date: 20240617
  Transmission Date: 20240715
  Serious: Yes (Hospitalization)
  Sender: FDA-Public Use
  Company Number: None

PATIENT
  Age: 88 Year
  Sex: Male

DRUGS (11)
  1. NUPLAZID [Suspect]
     Active Substance: PIMAVANSERIN TARTRATE
     Indication: Dementia with Lewy bodies
     Dosage: FREQUENCY : DAILY;?
     Route: 048
     Dates: start: 20231011
  2. PANTOPRAZOLE [Concomitant]
     Active Substance: PANTOPRAZOLE
  3. ELIQUIS [Concomitant]
     Active Substance: APIXABAN
  4. TAMSULOSIN [Concomitant]
     Active Substance: TAMSULOSIN
  5. CITALOPRAM [Concomitant]
     Active Substance: CITALOPRAM\CITALOPRAM HYDROBROMIDE
  6. BISOPROLOL [Concomitant]
     Active Substance: BISOPROLOL\BISOPROLOL FUMARATE
  7. MELATONIN [Concomitant]
     Active Substance: MELATONIN
  8. VITAMINS [Concomitant]
     Active Substance: VITAMINS
  9. VITAMIN B COMPLEX [Concomitant]
     Active Substance: CYANOCOBALAMIN\DEXPANTHENOL\NIACINAMIDE\PYRIDOXINE HYDROCHLORIDE\RIBOFLAVIN 5^-PHOSPHATE SODIUM\THIA
  10. LAGEVRIO [Concomitant]
     Active Substance: MOLNUPIRAVIR
  11. ROSUVASTATIN [Concomitant]
     Active Substance: ROSUVASTATIN

REACTIONS (6)
  - Pain [None]
  - Nausea [None]
  - Vomiting [None]
  - Escherichia infection [None]
  - Streptococcal infection [None]
  - Urinary tract infection [None]

NARRATIVE: CASE EVENT DATE: 20240606
